FAERS Safety Report 8617059-8 (Version None)
Quarter: 2012Q3

REPORT INFORMATION
  Report Type: 
  Country: None (occurrence: None)
  Receive Date: 20120823
  Receipt Date: 20120815
  Transmission Date: 20120928
  Serious: No
  Sender: FDA-Public Use
  Company Number: US-009507513-1208USA007077

PATIENT

DRUGS (2)
  1. ALBUTEROL [Concomitant]
     Dosage: UNK
  2. ASMANEX TWISTHALER [Suspect]
     Indication: RESPIRATORY DISORDER
     Dosage: 220 MICROGRAM, UNK
     Dates: start: 20120726

REACTIONS (2)
  - PRODUCT QUALITY ISSUE [None]
  - DRUG DOSE OMISSION [None]
